FAERS Safety Report 16954343 (Version 1)
Quarter: 2019Q4

REPORT INFORMATION
  Report Type: Spontaneous
  Country: BE (occurrence: BE)
  Receive Date: 20191023
  Receipt Date: 20191023
  Transmission Date: 20200122
  Serious: Yes (Death)
  Sender: FDA-Public Use
  Company Number: BE-CELGENEUS-BEL-20191006805

PATIENT
  Sex: Female

DRUGS (2)
  1. ATEZOLIZUMAB. [Concomitant]
     Active Substance: ATEZOLIZUMAB
     Indication: TRIPLE NEGATIVE BREAST CANCER
     Route: 042
     Dates: start: 20190801, end: 20190826
  2. ABRAXANE [Suspect]
     Active Substance: PACLITAXEL
     Indication: TRIPLE NEGATIVE BREAST CANCER
     Route: 041
     Dates: end: 20190912

REACTIONS (1)
  - Death [Fatal]

NARRATIVE: CASE EVENT DATE: 20190912
